FAERS Safety Report 13117214 (Version 2)
Quarter: 2017Q1

REPORT INFORMATION
  Report Type: Spontaneous
  Country: DE (occurrence: DE)
  Receive Date: 20170116
  Receipt Date: 20170125
  Transmission Date: 20170428
  Serious: Yes (Other)
  Sender: FDA-Public Use
  Company Number: DE-JNJFOC-20170110882

PATIENT
  Age: 75 Year
  Sex: Female

DRUGS (4)
  1. CISPLATIN. [Suspect]
     Active Substance: CISPLATIN
     Indication: OVARIAN CANCER
     Dosage: 13 CYCLES
     Route: 033
     Dates: start: 201410, end: 201608
  2. CARBOPLATIN. [Concomitant]
     Active Substance: CARBOPLATIN
     Route: 042
  3. DOXORUBICIN HYDROCHLORIDE. [Suspect]
     Active Substance: DOXORUBICIN HYDROCHLORIDE
     Indication: OVARIAN CANCER
     Dosage: 13 CYCLES
     Route: 033
     Dates: start: 201410, end: 201608
  4. TAMOXIFEN [Concomitant]
     Active Substance: TAMOXIFEN
     Route: 065

REACTIONS (5)
  - Pyrexia [Unknown]
  - Off label use [Unknown]
  - Abdominal pain [Unknown]
  - Incorrect route of drug administration [Unknown]
  - Pleural effusion [Unknown]
